FAERS Safety Report 15121619 (Version 1)
Quarter: 2018Q3

REPORT INFORMATION
  Report Type: Report from Study
  Country: IL (occurrence: IL)
  Receive Date: 20180709
  Receipt Date: 20180709
  Transmission Date: 20181010
  Serious: Yes (Hospitalization)
  Sender: FDA-Public Use
  Company Number: IL-IPSEN BIOPHARMACEUTICALS, INC.-2018-09719

PATIENT
  Age: 2 Year
  Sex: Female
  Weight: 10.8 kg

DRUGS (2)
  1. SOMATULINE PR 30MG [Suspect]
     Active Substance: LANREOTIDE ACETATE
     Indication: HYPERINSULINAEMIA
     Dosage: 18 MG
     Route: 065
     Dates: start: 20180515
  2. SOMATULINE PR 30MG [Suspect]
     Active Substance: LANREOTIDE ACETATE
     Indication: OFF LABEL USE

REACTIONS (4)
  - Liver function test abnormal [Unknown]
  - Hypoglycaemia [Unknown]
  - Off label use [Unknown]
  - Seizure [Unknown]

NARRATIVE: CASE EVENT DATE: 201806
